FAERS Safety Report 22157012 (Version 1)
Quarter: 2023Q1

REPORT INFORMATION
  Report Type: Spontaneous
  Country: None (occurrence: GB)
  Receive Date: 20230330
  Receipt Date: 20230330
  Transmission Date: 20230418
  Serious: Yes (Hospitalization, Disabling, Other)
  Sender: FDA-Public Use
  Company Number: GB-Ascend Therapeutics US, LLC-2139717

PATIENT
  Age: 60 Year

DRUGS (4)
  1. ESTROGEL [Suspect]
     Active Substance: ESTRADIOL
     Indication: Menopause
     Route: 065
     Dates: start: 20221223
  2. ESTROGEL [Suspect]
     Active Substance: ESTRADIOL
  3. ESTRADIOL [Suspect]
     Active Substance: ESTRADIOL
     Route: 065
     Dates: start: 20221223
  4. UTROGESTAN [Suspect]
     Active Substance: PROGESTERONE
     Route: 065
     Dates: start: 20221223

REACTIONS (9)
  - Chest pain [Recovered/Resolved with Sequelae]
  - Muscle fatigue [Recovering/Resolving]
  - Malaise [Recovered/Resolved with Sequelae]
  - Palpitations [Not Recovered/Not Resolved]
  - Dysuria [Recovering/Resolving]
  - Dizziness [Recovering/Resolving]
  - Headache [Recovering/Resolving]
  - Abdominal pain [Recovered/Resolved]
  - Medication error [Not Recovered/Not Resolved]

NARRATIVE: CASE EVENT DATE: 20221223
